FAERS Safety Report 9450631 (Version 1)
Quarter: 2013Q3

REPORT INFORMATION
  Report Type: Spontaneous
  Country: US (occurrence: US)
  Receive Date: 20130809
  Receipt Date: 20130809
  Transmission Date: 20140515
  Serious: Yes (Hospitalization)
  Sender: FDA-Public Use
  Company Number: US-009507513-2010SP032251

PATIENT
  Sex: Female
  Weight: 81.65 kg

DRUGS (11)
  1. NUVARING [Suspect]
     Indication: WEIGHT INCREASED
     Dosage: UNK
     Route: 067
     Dates: start: 200803, end: 200806
  2. NUVARING [Suspect]
     Indication: CONTRACEPTION
  3. COUMADIN [Suspect]
     Indication: ANTICOAGULANT THERAPY
     Dates: start: 20080610
  4. ADVAIR [Concomitant]
     Indication: ASTHMA
     Dosage: 2 DF, QD
     Route: 055
  5. SINGULAIR [Concomitant]
     Indication: ASTHMA
     Dosage: 10 MG, QD
     Route: 048
  6. ASTELIN (AZELASTINE HYDROCHLORIDE) [Concomitant]
     Indication: PRODUCT USED FOR UNKNOWN INDICATION
  7. FLONASE [Concomitant]
     Indication: PRODUCT USED FOR UNKNOWN INDICATION
  8. TOPROL XL TABLETS [Concomitant]
     Indication: PRODUCT USED FOR UNKNOWN INDICATION
     Dates: start: 2005
  9. BUSPIRONE HYDROCHLORIDE [Concomitant]
     Indication: PRODUCT USED FOR UNKNOWN INDICATION
  10. CELEXA [Concomitant]
     Indication: PRODUCT USED FOR UNKNOWN INDICATION
  11. TYLENOL [Concomitant]
     Indication: HEADACHE
     Dosage: USED IN THE 40 DAY PERIOD PRIOR TO THE ONSET OF INJURY

REACTIONS (6)
  - Blood pressure orthostatic [Recovered/Resolved]
  - Hypotension [Recovered/Resolved]
  - Lymphadenitis [Recovering/Resolving]
  - Deep vein thrombosis [Unknown]
  - Venous insufficiency [Unknown]
  - Migraine [Recovered/Resolved]
